FAERS Safety Report 10698458 (Version 1)
Quarter: 2014Q3

REPORT INFORMATION
  Report Type: Spontaneous
  Country: US (occurrence: US)
  Receive Date: 20140922
  Receipt Date: 20140922
  Transmission Date: 20150326
  Serious: Yes (Other)
  Sender: FDA-Public Use
  Company Number: US-APOTEX-2014AP004672

PATIENT
  Age: 31 Year
  Sex: Male

DRUGS (7)
  1. PREGABALIN. [Concomitant]
     Active Substance: PREGABALIN
     Indication: MAJOR DEPRESSION
     Dosage: 300MG DAILY
     Route: 065
  2. CLONAZEPAM TABLETS USP [Suspect]
     Active Substance: CLONAZEPAM
     Dosage: TAPERED TO 1.5 MG DAILY
     Route: 065
  3. BUPRENORPHINE AND NALOXONE [Suspect]
     Active Substance: BUPRENORPHINE\NALOXONE
     Dosage: TAPERED TO 1 MG OVER ONE MONTHS
     Route: 060
  4. CLONAZEPAM TABLETS USP [Suspect]
     Active Substance: CLONAZEPAM
     Indication: MAJOR DEPRESSION
     Dosage: 3 MG DAILY
     Route: 065
  5. BUPRENORPHINE AND NALOXONE [Suspect]
     Active Substance: BUPRENORPHINE\NALOXONE
     Dosage: TAPERED FROM 32MG TO 2MG OVER A COURSE OF 3 MONTHS
  6. WELLBUTRIN XL [Concomitant]
     Active Substance: BUPROPION HYDROCHLORIDE
     Indication: MAJOR DEPRESSION
     Dosage: UNK
     Route: 065
  7. BUPRENORPHINE AND NALOXONE [Suspect]
     Active Substance: BUPRENORPHINE\NALOXONE
     Indication: DRUG ABUSE
     Dosage: UNK
     Route: 060

REACTIONS (3)
  - Restless legs syndrome [Recovered/Resolved]
  - Sleep apnoea syndrome [Recovered/Resolved]
  - Drug withdrawal syndrome [Recovered/Resolved]
